FAERS Safety Report 4466792-0 (Version None)
Quarter: 2004Q4

REPORT INFORMATION
  Report Type: 
  Country: None (occurrence: None)
  Receive Date: 20041001
  Receipt Date: 20040917
  Transmission Date: 20050328
  Serious: Yes (Death)
  Sender: FDA-Public Use
  Company Number: 196460

PATIENT
  Age: 61 Year
  Sex: Female

DRUGS (9)
  1. AVONEX [Suspect]
     Indication: MULTIPLE SCLEROSIS
     Dosage: 30 MCG QW IM
     Route: 030
     Dates: start: 20010220, end: 20030801
  2. AVONEX [Suspect]
     Indication: MULTIPLE SCLEROSIS
     Dosage: 30 MCG QW IM
     Route: 030
     Dates: start: 20030819, end: 20040329
  3. PROVIGIL [Concomitant]
  4. LEXAPRO [Concomitant]
  5. VERAPAMIL [Concomitant]
  6. ZOCOR [Concomitant]
  7. NAPROXEN [Concomitant]
  8. NEXIUM [Concomitant]
  9. TRIAMTERENE [Concomitant]

REACTIONS (1)
  - CEREBRAL HAEMORRHAGE [None]
